FAERS Safety Report 25487011 (Version 1)
Quarter: 2025Q2

REPORT INFORMATION
  Report Type: Spontaneous
  Country: US (occurrence: US)
  Receive Date: 20250627
  Receipt Date: 20250627
  Transmission Date: 20250717
  Serious: No
  Sender: ELI LILLY AND COMPANY
  Company Number: US-ELI_LILLY_AND_COMPANY-US202506022593

PATIENT
  Age: 89 Year
  Sex: Female

DRUGS (2)
  1. TRULICITY [Suspect]
     Active Substance: DULAGLUTIDE
     Indication: Product used for unknown indication
     Route: 065
     Dates: start: 202312
  2. TRULICITY [Suspect]
     Active Substance: DULAGLUTIDE
     Route: 065

REACTIONS (3)
  - Visual impairment [Not Recovered/Not Resolved]
  - Goitre [Not Recovered/Not Resolved]
  - Thyroid mass [Not Recovered/Not Resolved]

NARRATIVE: CASE EVENT DATE: 20240101
